FAERS Safety Report 24085253 (Version 1)
Quarter: 2024Q3

REPORT INFORMATION
  Report Type: Spontaneous
  Country: DE (occurrence: None)
  Receive Date: 20240712
  Receipt Date: 20240712
  Transmission Date: 20241017
  Serious: Yes (Other)
  Sender: ASTRAZENECA
  Company Number: 2024A156032

PATIENT
  Age: 54 Year
  Sex: Female

DRUGS (2)
  1. LYNPARZA [Suspect]
     Active Substance: OLAPARIB
     Indication: Neoplasm malignant
     Route: 048
     Dates: start: 202304
  2. DAPAGLIFLOZIN [Concomitant]
     Active Substance: DAPAGLIFLOZIN
     Route: 048

REACTIONS (4)
  - Metastases to central nervous system [Unknown]
  - Dizziness [Not Recovered/Not Resolved]
  - Hypothyroidism [Unknown]
  - Weight decreased [Unknown]

NARRATIVE: CASE EVENT DATE: 20240401
